FAERS Safety Report 16600542 (Version 1)
Quarter: 2019Q3

REPORT INFORMATION
  Report Type: Spontaneous
  Country: ES (occurrence: ES)
  Receive Date: 20190720
  Receipt Date: 20190720
  Transmission Date: 20191004
  Serious: Yes (Other)
  Sender: FDA-Public Use
  Company Number: ES-AUROBINDO-AUR-APL-2019-042008

PATIENT

DRUGS (1)
  1. AZITHROMYCIN 500 MG FILM-COATED TABLETS [Suspect]
     Active Substance: AZITHROMYCIN
     Indication: URINARY TRACT INFECTION
     Dosage: 500 MILLIGRAM, DAILY (EVERY 24 HOURS)
     Route: 048
     Dates: start: 20190513, end: 20190513

REACTIONS (3)
  - Dyspnoea [Recovered/Resolved]
  - Laryngospasm [Recovered/Resolved]
  - Paraesthesia [Recovered/Resolved]

NARRATIVE: CASE EVENT DATE: 20190513
